FAERS Safety Report 7735619-3 (Version None)
Quarter: 2011Q3

REPORT INFORMATION
  Report Type: 
  Country: None (occurrence: None)
  Receive Date: 20110907
  Receipt Date: 20110825
  Transmission Date: 20111222
  Serious: Yes (Other)
  Sender: FDA-Public Use
  Company Number: US-RB-031912-11

PATIENT
  Sex: Male

DRUGS (2)
  1. ANTIDEPRESSANT [Suspect]
     Indication: DEPRESSION
     Dosage: DOSING INFORMATION UNKNOWN
     Route: 048
  2. SUBOXONE [Suspect]
     Indication: DRUG DEPENDENCE
     Dosage: SUBLINGUAL FILM; DOSING INFORMATION UNKNOWN
     Route: 060

REACTIONS (2)
  - SEROTONIN SYNDROME [None]
  - DRUG INTERACTION [None]
